FAERS Safety Report 6390233-X (Version None)
Quarter: 2009Q4

REPORT INFORMATION
  Report Type: 
  Country: None (occurrence: None)
  Receive Date: 20091006
  Receipt Date: 20090930
  Transmission Date: 20100525
  Serious: Yes (Hospitalization)
  Sender: FDA-Public Use
  Company Number: B0582459A

PATIENT
  Sex: Male
  Weight: 54 kg

DRUGS (4)
  1. VALTREX [Suspect]
     Indication: HERPES ZOSTER
     Dosage: 1000MG THREE TIMES PER DAY
     Route: 048
     Dates: start: 20090626, end: 20090626
  2. VOLTAREN [Suspect]
     Indication: DRUG USE FOR UNKNOWN INDICATION
     Route: 065
  3. TAKEPRON [Concomitant]
     Route: 048
  4. MUCOSTA [Concomitant]
     Route: 048

REACTIONS (7)
  - AGITATION [None]
  - CONFUSIONAL STATE [None]
  - HALLUCINATION, VISUAL [None]
  - MUSCULAR WEAKNESS [None]
  - PSYCHIATRIC SYMPTOM [None]
  - QUADRIPLEGIA [None]
  - RENAL FAILURE [None]
